FAERS Safety Report 12917269 (Version 1)
Quarter: 2016Q4

REPORT INFORMATION
  Report Type: Spontaneous
  Country: US (occurrence: US)
  Receive Date: 20161107
  Receipt Date: 20161107
  Transmission Date: 20170207
  Serious: No
  Sender: FDA-Public Use
  Company Number: US-JAZZ-2016-US-017441

PATIENT
  Sex: Female

DRUGS (29)
  1. NORCO [Concomitant]
     Active Substance: ACETAMINOPHEN\HYDROCODONE BITARTRATE
  2. REMICADE [Concomitant]
     Active Substance: INFLIXIMAB
  3. LAMICTAL [Concomitant]
     Active Substance: LAMOTRIGINE
  4. TRIAMTERENE AND HYDROCHLOROTHIAZIDE [Concomitant]
     Active Substance: HYDROCHLOROTHIAZIDE\TRIAMTERENE
  5. HYDROCHLOROTHIAZIDE. [Concomitant]
     Active Substance: HYDROCHLOROTHIAZIDE
  6. PLAVIX [Concomitant]
     Active Substance: CLOPIDOGREL BISULFATE
  7. FLONASE [Suspect]
     Active Substance: FLUTICASONE PROPIONATE
     Indication: PRODUCT USED FOR UNKNOWN INDICATION
  8. ADVIL [Concomitant]
     Active Substance: IBUPROFEN
  9. LISINOPRIL. [Concomitant]
     Active Substance: LISINOPRIL
  10. CLONIDINE HCL [Concomitant]
     Active Substance: CLONIDINE HYDROCHLORIDE
  11. ASPIRIN EC [Concomitant]
     Active Substance: ASPIRIN
  12. HYDROCODONE BITARTRATE AND ACETAMINOPHEN [Concomitant]
     Active Substance: ACETAMINOPHEN\HYDROCODONE BITARTRATE
  13. METHADONE HCL [Concomitant]
     Active Substance: METHADONE HYDROCHLORIDE
  14. XYREM [Suspect]
     Active Substance: SODIUM OXYBATE
     Dosage: 4 G, BID
     Route: 048
     Dates: start: 200404
  15. EXALGO [Concomitant]
     Active Substance: HYDROMORPHONE HYDROCHLORIDE
  16. LEVOXYL [Concomitant]
     Active Substance: LEVOTHYROXINE SODIUM
  17. NITROSTAT [Concomitant]
     Active Substance: NITROGLYCERIN
  18. OXYCODONE AND ACETAMINOPHEN [Concomitant]
     Active Substance: ACETAMINOPHEN\OXYCODONE HYDROCHLORIDE
  19. PREMARIN [Concomitant]
     Active Substance: ESTROGENS, CONJUGATED
  20. FENTANYL. [Concomitant]
     Active Substance: FENTANYL
  21. RISPERDAL [Concomitant]
     Active Substance: RISPERIDONE
  22. DIPHENHYDRAMINE HCL [Concomitant]
     Active Substance: DIPHENHYDRAMINE HYDROCHLORIDE
  23. XYREM [Suspect]
     Active Substance: SODIUM OXYBATE
     Indication: CATAPLEXY
     Dosage: DOSE ADJUSTMENTS
     Route: 048
     Dates: start: 200306, end: 200404
  24. XANAX XR [Concomitant]
     Active Substance: ALPRAZOLAM
  25. LIPITOR [Concomitant]
     Active Substance: ATORVASTATIN CALCIUM
  26. XYREM [Suspect]
     Active Substance: SODIUM OXYBATE
     Indication: NARCOLEPSY
     Dosage: 3 G, BID
     Route: 048
     Dates: start: 200305, end: 200306
  27. OXYCODONE [Suspect]
     Active Substance: OXYCODONE
     Indication: PRODUCT USED FOR UNKNOWN INDICATION
  28. VYTORIN [Concomitant]
     Active Substance: EZETIMIBE\SIMVASTATIN
  29. ATENOLOL. [Concomitant]
     Active Substance: ATENOLOL

REACTIONS (5)
  - Therapeutic response decreased [Unknown]
  - Headache [Unknown]
  - Pruritus [Recovering/Resolving]
  - Drug ineffective [Unknown]
  - Pain [Not Recovered/Not Resolved]
